FAERS Safety Report 7962981-9 (Version None)
Quarter: 2011Q4

REPORT INFORMATION
  Report Type: 
  Country: None (occurrence: None)
  Receive Date: 20111207
  Receipt Date: 20111128
  Transmission Date: 20120403
  Serious: Yes (Other)
  Sender: FDA-Public Use
  Company Number: US-ASTRAZENECA-2010SE25838

PATIENT
  Age: 48 Year
  Sex: Female

DRUGS (1)
  1. SEROQUEL [Suspect]
     Indication: BIPOLAR DISORDER
     Route: 048

REACTIONS (6)
  - MALAISE [None]
  - FEELING ABNORMAL [None]
  - DRUG DOSE OMISSION [None]
  - COORDINATION ABNORMAL [None]
  - LIGAMENT SPRAIN [None]
  - CRYING [None]
